FAERS Safety Report 24687620 (Version 2)
Quarter: 2024Q4

REPORT INFORMATION
  Report Type: Spontaneous
  Country: HU (occurrence: HU)
  Receive Date: 20241202
  Receipt Date: 20241206
  Transmission Date: 20250115
  Serious: Yes (Other)
  Sender: MYLAN
  Company Number: HU-002147023-NVSC2024HU218495

PATIENT
  Age: 19 Year
  Sex: Female

DRUGS (1)
  1. FINGOLIMOD [Suspect]
     Active Substance: FINGOLIMOD
     Indication: Relapsing-remitting multiple sclerosis
     Dosage: UNK
     Route: 065
     Dates: start: 202105, end: 20240226

REACTIONS (7)
  - Epstein-Barr virus infection [Unknown]
  - Varicella zoster virus infection [Unknown]
  - Lymphopenia [Recovered/Resolved]
  - Sensory disturbance [Unknown]
  - Radiologically isolated syndrome [Unknown]
  - Central nervous system lesion [Unknown]
  - Liver function test abnormal [Recovered/Resolved]

NARRATIVE: CASE EVENT DATE: 20240101
